FAERS Safety Report 21096751 (Version 3)
Quarter: 2023Q1

REPORT INFORMATION
  Report Type: Other
  Country: GB (occurrence: None)
  Receive Date: 20220718
  Receipt Date: 20230127
  Transmission Date: 20230417
  Serious: Yes (Hospitalization, Other)
  Sender: FDA-Public Use
  Company Number: GB-ROCHE-3138286

PATIENT
  Sex: Female

DRUGS (1)
  1. EVRYSDI [Suspect]
     Active Substance: RISDIPLAM
     Indication: Spinal muscular atrophy
     Dosage: DOSE 0.75 MG?5.8ML DAILY
     Route: 048
     Dates: start: 20210514

REACTIONS (3)
  - Intramedullary rod insertion [Unknown]
  - Weight decreased [Unknown]
  - Incorrect dose administered [Unknown]
